FAERS Safety Report 5814971-X (Version None)
Quarter: 2008Q3

REPORT INFORMATION
  Report Type: 
  Country: None (occurrence: None)
  Receive Date: 20080718
  Receipt Date: 20080715
  Transmission Date: 20090109
  Serious: Yes (Death, Hospitalization, Other)
  Sender: FDA-Public Use
  Company Number: PHHY2008JP03767

PATIENT
  Sex: Female
  Weight: 41 kg

DRUGS (9)
  1. ZOMETA [Suspect]
     Indication: METASTASES TO BONE
     Dosage: UNK
     Route: 042
     Dates: start: 20060905, end: 20070825
  2. AREDIA [Suspect]
     Indication: METASTASES TO LIVER
     Dosage: UNK
     Route: 042
     Dates: start: 20050324, end: 20060822
  3. ARIMIDEX [Concomitant]
     Indication: METASTASES TO LIVER
     Dosage: 1 MG, UNK
     Route: 048
     Dates: start: 20050312, end: 20050601
  4. HYSRON [Concomitant]
     Indication: METASTASES TO LIVER
     Dosage: 800 MG, UNK
     Route: 048
     Dates: start: 20050602, end: 20051121
  5. TAXOL [Concomitant]
     Indication: METASTASES TO LIVER
     Dosage: UNK
     Route: 042
     Dates: start: 20051122, end: 20060214
  6. NAVELBINE [Concomitant]
     Indication: METASTASES TO LIVER
     Dosage: UNK
     Route: 042
     Dates: start: 20060406, end: 20060511
  7. XELODA [Concomitant]
     Indication: METASTASES TO LIVER
     Dosage: 1800 MG, UNK
     Route: 048
     Dates: start: 20060518, end: 20060904
  8. MITOMYCIN [Concomitant]
     Indication: METASTASES TO LIVER
     Dosage: UNK
     Route: 042
     Dates: start: 20060905, end: 20070202
  9. ADRIACIN [Concomitant]
     Indication: METASTASES TO LIVER
     Dosage: UNK
     Route: 042
     Dates: start: 20070309, end: 20070522

REACTIONS (10)
  - BONE DISORDER [None]
  - HEPATIC FAILURE [None]
  - METASTASES TO BONE [None]
  - METASTASES TO LIVER [None]
  - MULTI-ORGAN FAILURE [None]
  - OSTEONECROSIS [None]
  - PANCYTOPENIA [None]
  - SEQUESTRECTOMY [None]
  - TOOTH ABSCESS [None]
  - TOOTH LOSS [None]
